FAERS Safety Report 15481214 (Version 2)
Quarter: 2018Q4

REPORT INFORMATION
  Report Type: Spontaneous
  Country: ES (occurrence: ES)
  Receive Date: 20181010
  Receipt Date: 20181025
  Transmission Date: 20190205
  Serious: Yes (Life-Threatening, Other)
  Sender: FDA-Public Use
  Company Number: ES-AUROBINDO-AUR-APL-2018-048828

PATIENT
  Age: 47 Year
  Sex: Male

DRUGS (2)
  1. MEROPENEM. [Suspect]
     Active Substance: MEROPENEM
     Indication: UROSEPSIS
  2. MEROPENEM. [Suspect]
     Active Substance: MEROPENEM
     Indication: SEPSIS
     Dosage: 1 DOSAGE FORM, IN TOTAL
     Route: 065

REACTIONS (7)
  - Dyspnoea [Unknown]
  - Wheezing [Unknown]
  - Hypotension [Unknown]
  - Dermatitis exfoliative generalised [Unknown]
  - Anaphylactic shock [Recovering/Resolving]
  - Type III immune complex mediated reaction [Unknown]
  - Pruritus generalised [Unknown]
